FAERS Safety Report 19886167 (Version 1)
Quarter: 2021Q3

REPORT INFORMATION
  Report Type: Spontaneous
  Country: HU (occurrence: HU)
  Receive Date: 20210927
  Receipt Date: 20210927
  Transmission Date: 20211014
  Serious: Yes (Hospitalization, Other)
  Sender: FDA-Public Use
  Company Number: HU-PFIZER INC-202101217388

PATIENT
  Sex: Female

DRUGS (24)
  1. TENSIOMIN [Suspect]
     Active Substance: CAPTOPRIL
     Indication: HYPERTENSION
     Dosage: OCCASIONALLY
  2. TALLITON [Suspect]
     Active Substance: CARVEDILOL
     Indication: HYPERTENSION
     Dosage: FORM STRENGTH: 12.5 MG
  3. DOPEGYT [Concomitant]
     Active Substance: METHYLDOPA
     Indication: HYPERTENSION
     Dosage: 250 MG
  4. ZYLLT [Concomitant]
     Active Substance: CLOPIDOGREL BISULFATE
     Indication: PRODUCT USED FOR UNKNOWN INDICATION
     Dosage: 75 MG, 1X/DAY (IN THE MORNING)
  5. CLOPIDOGREL [Concomitant]
     Active Substance: CLOPIDOGREL BISULFATE
     Indication: THROMBOSIS PROPHYLAXIS
     Dosage: UNK
  6. COVERCARD PLUS [Suspect]
     Active Substance: AMLODIPINE BESYLATE\INDAPAMIDE\PERINDOPRIL ARGININE
     Indication: HYPERTENSION
     Dosage: UNK
  7. MAGNESIUM + B6 [Concomitant]
     Indication: SEDATIVE THERAPY
  8. PANANGIN FORTE [Concomitant]
     Indication: PRODUCT USED FOR UNKNOWN INDICATION
     Dosage: 8 HOURS
  9. CARDURA XL [Concomitant]
     Active Substance: DOXAZOSIN MESYLATE
     Indication: PRODUCT USED FOR UNKNOWN INDICATION
     Dosage: UNK
  10. CORDAFLEX [Suspect]
     Active Substance: NIFEDIPINE
     Indication: HYPERTENSION
     Dosage: 5 MG (1 PUFF IF BP IS BETWEEN 160?170, 2 PUFFS IF BP IS BETWEEN 170?200, 3 PUFFS IF BP IS ABOVE 200)
  11. DIOVAN [Concomitant]
     Active Substance: VALSARTAN
     Indication: PRODUCT USED FOR UNKNOWN INDICATION
     Dosage: 160 MG, 2X/DAY
  12. AMLODIPINE SANDOZ [AMLODIPINE BESILATE] [Concomitant]
     Indication: PRODUCT USED FOR UNKNOWN INDICATION
     Dosage: IN THE MORNING, 5/160 MG
  13. IVABRADINE ANPHARM [Concomitant]
     Indication: ARRHYTHMIA
     Dosage: 7.5 MG (2X1/2 TABL DAILY)
  14. TENAXUM [Suspect]
     Active Substance: RILMENIDINE
     Indication: HYPERTENSION
     Dosage: 1 MG, 8 HOURS
  15. XANAX XR [Concomitant]
     Active Substance: ALPRAZOLAM
     Indication: PRODUCT USED FOR UNKNOWN INDICATION
     Dosage: 1 MG, 2X/DAY
  16. OXYCORT [HYDROCORTISONE ACETATE;OXYTETRACYCLINE] [Concomitant]
     Indication: PRODUCT USED FOR UNKNOWN INDICATION
     Dosage: UNK
  17. VALSARTAN. [Suspect]
     Active Substance: VALSARTAN
     Indication: HYPERTENSION
     Dosage: 160 MG, 8 HOURS
  18. TENSIOMIN [Suspect]
     Active Substance: CAPTOPRIL
     Dosage: 12.5 MG, 6 HOURS
     Dates: start: 2020
  19. PYRIDOXINE [Concomitant]
     Active Substance: PYRIDOXINE
     Indication: SEDATIVE THERAPY
     Dosage: UNK
  20. ASA PROTECT PHARMAVIT [Concomitant]
     Indication: THROMBOSIS PROPHYLAXIS
     Dosage: 100 MG, 1X/DAY (IN THE MORNING)
  21. INSPRA [Suspect]
     Active Substance: EPLERENONE
     Indication: HYPERTENSION
     Dosage: 50 MG, 1X/DAY (IN THE MORNING)
     Dates: start: 202103
  22. AMLODIPINE+LISINOPRIL [Suspect]
     Active Substance: AMLODIPINE BESYLATE\LISINOPRIL
     Indication: HYPERTENSION
     Dosage: 10 MG, ONLY ONE BLISTER
  23. ACTIVATED CARBON WITH PECTIN [Concomitant]
     Indication: DIARRHOEA
     Dosage: UNK
  24. NEBIBETA [Concomitant]
     Active Substance: NEBIVOLOL HYDROCHLORIDE
     Indication: PRODUCT USED FOR UNKNOWN INDICATION
     Dosage: 5 MG, 1X/DAY

REACTIONS (36)
  - Blood glucose increased [Unknown]
  - Leukopenia [Unknown]
  - Depression [Not Recovered/Not Resolved]
  - Genital blister [Unknown]
  - Hypercholesterolaemia [Unknown]
  - Dry mouth [Unknown]
  - Headache [Unknown]
  - Oedema peripheral [Unknown]
  - Constipation [Unknown]
  - Dehydration [Unknown]
  - Sleep deficit [Unknown]
  - Cough [Unknown]
  - Nocturia [Unknown]
  - Abdominal pain [Unknown]
  - Gastrooesophageal sphincter insufficiency [Unknown]
  - Vertigo [Unknown]
  - Palpitations [Unknown]
  - Arthralgia [Unknown]
  - Skin wrinkling [Unknown]
  - Treatment noncompliance [Unknown]
  - Insomnia [Unknown]
  - Abdominal distension [Unknown]
  - Dyspnoea [Unknown]
  - Visual impairment [Unknown]
  - Hypertension [Unknown]
  - Hypoaesthesia [Unknown]
  - Vision blurred [Unknown]
  - Pulmonary oedema [Unknown]
  - Haematuria [Unknown]
  - Product prescribing error [Unknown]
  - Product dose omission issue [Unknown]
  - Hypercoagulation [Unknown]
  - Alopecia [Unknown]
  - Weight increased [Unknown]
  - Flatulence [Unknown]
  - Urinary tract infection [Unknown]
